FAERS Safety Report 19066050 (Version 3)
Quarter: 2021Q3

REPORT INFORMATION
  Report Type: Spontaneous
  Country: GB (occurrence: GB)
  Receive Date: 20210327
  Receipt Date: 20210702
  Transmission Date: 20211014
  Serious: Yes (Life-Threatening, Hospitalization, Disabling, Other)
  Sender: FDA-Public Use
  Company Number: PHHY2019GB093175

PATIENT
  Age: 22 Year
  Sex: Male

DRUGS (9)
  1. ARIPIPRAZOLE. [Concomitant]
     Active Substance: ARIPIPRAZOLE
     Indication: PRODUCT USED FOR UNKNOWN INDICATION
     Dosage: UNK
     Route: 065
  2. PROCYCLIDINE [Suspect]
     Active Substance: PROCYCLIDINE
     Indication: TARDIVE DYSKINESIA
     Dosage: 2.5 MG
     Route: 065
  3. INSULIN [Concomitant]
     Active Substance: INSULIN NOS
     Indication: PRODUCT USED FOR UNKNOWN INDICATION
     Dosage: UNK
     Route: 065
  4. QUETIAPINE. [Suspect]
     Active Substance: QUETIAPINE
     Indication: PRODUCT USED FOR UNKNOWN INDICATION
     Dosage: 750 MG
     Route: 048
     Dates: start: 2011, end: 2012
  5. QUETIAPINE. [Suspect]
     Active Substance: QUETIAPINE
     Dosage: UNK
     Route: 048
     Dates: start: 2012
  6. METFORMIN [Concomitant]
     Active Substance: METFORMIN HYDROCHLORIDE
     Indication: PRODUCT USED FOR UNKNOWN INDICATION
     Dosage: UNK
     Route: 065
  7. DIAZEPAM. [Concomitant]
     Active Substance: DIAZEPAM
     Indication: PRODUCT USED FOR UNKNOWN INDICATION
     Dosage: UNK
     Route: 065
  8. LORAZEPAM. [Concomitant]
     Active Substance: LORAZEPAM
     Indication: PRODUCT USED FOR UNKNOWN INDICATION
     Dosage: UNK
     Route: 065
  9. CLARITHROMYCIN. [Concomitant]
     Active Substance: CLARITHROMYCIN
     Indication: PRODUCT USED FOR UNKNOWN INDICATION
     Dosage: UNK
     Route: 042

REACTIONS (102)
  - Long QT syndrome [Unknown]
  - Diabetes mellitus [Unknown]
  - Fatigue [Unknown]
  - Nerve injury [Unknown]
  - Nerve compression [Unknown]
  - Sleep apnoea syndrome [Unknown]
  - Musculoskeletal stiffness [Not Recovered/Not Resolved]
  - Fine motor skill dysfunction [Unknown]
  - Condition aggravated [Unknown]
  - Blood cholesterol increased [Unknown]
  - Confusional state [Unknown]
  - Oxygen saturation decreased [Unknown]
  - Tachycardia [Unknown]
  - Dyspnoea [Unknown]
  - Injury [Unknown]
  - Ulnar nerve palsy [Unknown]
  - Neuropathy peripheral [Unknown]
  - Grip strength decreased [Unknown]
  - Pain [Unknown]
  - Gait disturbance [Unknown]
  - Dizziness [Unknown]
  - Headache [Unknown]
  - Angina pectoris [Unknown]
  - White blood cell count decreased [Unknown]
  - Tremor [Unknown]
  - Pneumonia [Unknown]
  - Chest injury [Unknown]
  - Toxicity to various agents [Unknown]
  - Dystonia [Unknown]
  - Concussion [Unknown]
  - Irritability [Unknown]
  - Movement disorder [Unknown]
  - Hepatic steatosis [Unknown]
  - Blood triglycerides increased [Unknown]
  - Palpitations [Not Recovered/Not Resolved]
  - Muscle twitching [Unknown]
  - Tooth erosion [Unknown]
  - Contusion [Unknown]
  - Back pain [Unknown]
  - Bedridden [Unknown]
  - Drug hypersensitivity [Unknown]
  - Hallucination [Unknown]
  - Paranoia [Unknown]
  - Mood swings [Unknown]
  - Muscle atrophy [Unknown]
  - Hypoaesthesia [Unknown]
  - Loss of personal independence in daily activities [Unknown]
  - Myalgia [Unknown]
  - Circumstance or information capable of leading to medication error [Unknown]
  - Dyskinesia [Unknown]
  - Accidental overdose [Unknown]
  - Sleep terror [Unknown]
  - Delusional disorder, unspecified type [Unknown]
  - Cramp-fasciculation syndrome [Unknown]
  - Muscle contractions involuntary [Unknown]
  - Hepatic enzyme increased [Unknown]
  - Gynaecomastia [Unknown]
  - Immune system disorder [Unknown]
  - Euphoric mood [Unknown]
  - Hypertension [Unknown]
  - Mononeuropathy [Unknown]
  - Abdominal pain [Unknown]
  - Emotional distress [Unknown]
  - Sensation of foreign body [Unknown]
  - Feeling abnormal [Unknown]
  - Eyelid myokymia [Unknown]
  - Allergy to chemicals [Unknown]
  - Dystonic tremor [Unknown]
  - Nervous system disorder [Unknown]
  - Eye disorder [Unknown]
  - Neuroleptic malignant syndrome [Unknown]
  - Joint stiffness [Unknown]
  - Anger [Unknown]
  - Stridor [Unknown]
  - Muscle tightness [Unknown]
  - Memory impairment [Unknown]
  - Anxiety [Unknown]
  - Pallor [Unknown]
  - Feeling hot [Unknown]
  - Weight increased [Unknown]
  - Extrapyramidal disorder [Unknown]
  - Eructation [Unknown]
  - Polyneuropathy [Unknown]
  - Serotonin syndrome [Unknown]
  - Suicidal ideation [Unknown]
  - Metabolic syndrome [Unknown]
  - Pain in jaw [Unknown]
  - Weight decreased [Unknown]
  - Dysphonia [Unknown]
  - Shoulder deformity [Unknown]
  - Facial pain [Unknown]
  - Alopecia [Unknown]
  - Head injury [Unknown]
  - Brain injury [Unknown]
  - Frontal lobe epilepsy [Unknown]
  - Psychotic disorder [Unknown]
  - Malaise [Unknown]
  - Tongue biting [Unknown]
  - Muscle spasms [Unknown]
  - Fear of death [Not Recovered/Not Resolved]
  - Psychological trauma [Unknown]
  - Tardive dyskinesia [Not Recovered/Not Resolved]

NARRATIVE: CASE EVENT DATE: 2011
